FAERS Safety Report 23233348 (Version 1)
Quarter: 2023Q4

REPORT INFORMATION
  Report Type: Spontaneous
  Country: AT (occurrence: AT)
  Receive Date: 20231128
  Receipt Date: 20231128
  Transmission Date: 20240109
  Serious: Yes (Hospitalization, Other)
  Sender: FDA-Public Use
  Company Number: AT-ALKEM LABORATORIES LIMITED-AT-ALKEM-2023-14605

PATIENT
  Age: 57 Year
  Sex: Male

DRUGS (1)
  1. TRIAMCINOLONE ACETONIDE [Suspect]
     Active Substance: TRIAMCINOLONE ACETONIDE
     Indication: Intervertebral disc protrusion
     Dosage: UNK, (APPLIED)
     Route: 008

REACTIONS (3)
  - Cerebrospinal fluid leakage [Recovered/Resolved]
  - Pseudomeningocele [Recovered/Resolved]
  - Cerebrospinal fistula [Recovered/Resolved]
